FAERS Safety Report 6676676-5 (Version None)
Quarter: 2010Q1

REPORT INFORMATION
  Report Type: 
  Country: None (occurrence: None)
  Receive Date: 20100331
  Receipt Date: 20090426
  Transmission Date: 20100710
  Serious: Yes (Hospitalization, Other)
  Sender: FDA-Public Use
  Company Number: 2009165799

PATIENT
  Age: 78 Year
  Sex: Female
  Weight: 77 kg

DRUGS (1)
  1. SUTENT [Suspect]
     Indication: RENAL CELL CARCINOMA
     Dosage: 50 MG DAILY EVERY DAY, ORAL
     Route: 048
     Dates: start: 20090102, end: 20090117

REACTIONS (7)
  - BACTERIAL INFECTION [None]
  - GASTROINTESTINAL HAEMORRHAGE [None]
  - HAEMOGLOBIN ABNORMAL [None]
  - INFECTION [None]
  - PYREXIA [None]
  - RECTAL HAEMORRHAGE [None]
  - URINARY TRACT INFECTION [None]
